FAERS Safety Report 6772046-X (Version None)
Quarter: 2010Q2

REPORT INFORMATION
  Report Type: 
  Country: None (occurrence: None)
  Receive Date: 20100616
  Receipt Date: 20100610
  Transmission Date: 20101027
  Serious: Yes (Hospitalization, Other)
  Sender: FDA-Public Use
  Company Number: A0846263A

PATIENT
  Age: 50 Year
  Sex: Female

DRUGS (3)
  1. PROMACTA [Suspect]
     Indication: IDIOPATHIC THROMBOCYTOPENIC PURPURA
     Dosage: 50MG PER DAY
     Route: 048
     Dates: start: 20100115
  2. DEXAMETHASONE [Suspect]
  3. CORTICOSTEROIDS [Concomitant]

REACTIONS (3)
  - BIPOLAR I DISORDER [None]
  - COMPULSIVE SHOPPING [None]
  - MANIA [None]
